FAERS Safety Report 23797993 (Version 1)
Quarter: 2024Q2

REPORT INFORMATION
  Report Type: Spontaneous
  Country: GB (occurrence: GB)
  Receive Date: 20240430
  Receipt Date: 20240430
  Transmission Date: 20240715
  Serious: Yes (Other)
  Sender: FDA-Public Use
  Company Number: None

PATIENT
  Age: 37 Year
  Sex: Female

DRUGS (2)
  1. CIPROFLOXACIN [Suspect]
     Active Substance: CIPROFLOXACIN
     Indication: Urinary tract infection
     Dosage: 500 MG, BID
     Route: 048
     Dates: start: 20240405, end: 20240408
  2. DESOGESTREL [Concomitant]
     Active Substance: DESOGESTREL
     Indication: Contraception
     Dosage: UNK
     Dates: start: 20231001

REACTIONS (3)
  - Paraesthesia [Not Recovered/Not Resolved]
  - Arthralgia [Recovering/Resolving]
  - Pruritus [None]

NARRATIVE: CASE EVENT DATE: 20240407
